FAERS Safety Report 6172382-4 (Version None)
Quarter: 2009Q2

REPORT INFORMATION
  Report Type: 
  Country: None (occurrence: None)
  Receive Date: 20090429
  Receipt Date: 20090422
  Transmission Date: 20091009
  Serious: Yes (Other)
  Sender: FDA-Public Use
  Company Number: PHEH2008US01234

PATIENT
  Sex: Female

DRUGS (12)
  1. ZOMETA [Suspect]
     Dosage: 4 MG, QMO
     Route: 042
     Dates: start: 20070506
  2. TAXOTERE [Concomitant]
     Dosage: UNK
  3. OXYCONTIN [Concomitant]
     Dosage: 400 MG, Q8H
  4. OXYCODONE HCL [Concomitant]
     Dosage: UNK
  5. ARIMIDEX [Concomitant]
  6. RADIATION [Concomitant]
  7. CHEMOTHERAPEUTICS NOS [Concomitant]
  8. MULTI-VITAMINS [Concomitant]
  9. ASPIRIN [Concomitant]
  10. PAXIL [Concomitant]
     Dosage: 20 MG, QD
  11. CLONAZEPAM [Concomitant]
     Dosage: 0.5 MG, BID
  12. HYDROCHLOROTHIAZIDE [Concomitant]

REACTIONS (13)
  - ANHEDONIA [None]
  - ANXIETY [None]
  - COMPRESSION FRACTURE [None]
  - DEPRESSION [None]
  - DISABILITY [None]
  - HOSPICE CARE [None]
  - HYPOAESTHESIA [None]
  - INJURY [None]
  - OSTEONECROSIS [None]
  - OSTEOPOROSIS [None]
  - PAIN [None]
  - PAIN IN JAW [None]
  - WEIGHT DECREASED [None]
